FAERS Safety Report 7197184-1 (Version None)
Quarter: 2010Q4

REPORT INFORMATION
  Report Type: 
  Country: None (occurrence: None)
  Receive Date: 20101224
  Receipt Date: 20101210
  Transmission Date: 20110411
  Serious: Yes (Hospitalization, Other)
  Sender: FDA-Public Use
  Company Number: PHHY2010US75499

PATIENT
  Sex: Male
  Weight: 158.2 kg

DRUGS (11)
  1. EXJADE [Suspect]
     Indication: HAEMOLYTIC ANAEMIA
     Dosage: 1250 MG, QD
     Route: 048
     Dates: start: 20100614
  2. EXJADE [Suspect]
     Indication: HAEMOCHROMATOSIS
  3. PERCOCET [Concomitant]
  4. BENICAR [Concomitant]
  5. LOMOTIL [Concomitant]
  6. LIPITOR [Concomitant]
  7. TOPROL-XL [Concomitant]
     Dosage: 50 MG, UNK
  8. LACTULOSE [Concomitant]
  9. NORVASC [Concomitant]
  10. ARANESP [Concomitant]
     Dosage: 500 UG, UNK
  11. FLOMAX [Concomitant]

REACTIONS (6)
  - ANGINA PECTORIS [None]
  - ARTERIAL DISORDER [None]
  - CARDIAC DISORDER [None]
  - CATHETER PLACEMENT [None]
  - CHEST PAIN [None]
  - PROSTATIC SPECIFIC ANTIGEN INCREASED [None]
